FAERS Safety Report 14296919 (Version 1)
Quarter: 2017Q4

REPORT INFORMATION
  Report Type: Spontaneous
  Country: KR (occurrence: KR)
  Receive Date: 20171218
  Receipt Date: 20171218
  Transmission Date: 20180321
  Serious: Yes (Hospitalization)
  Sender: FDA-Public Use
  Company Number: KR-NOVAST LABORATORIES, LTD-KR-2017NOV000082

PATIENT
  Age: 11 Year
  Sex: Female

DRUGS (1)
  1. ACETAZOLAMIDE. [Suspect]
     Active Substance: ACETAZOLAMIDE
     Indication: SINGLE PHOTON EMISSION COMPUTERISED TOMOGRAM
     Dosage: 952 MG (14 MG/KG), INJECTED INFUSION OVER 2 MINUTES

REACTIONS (1)
  - Cerebral infarction [Not Recovered/Not Resolved]
